FAERS Safety Report 13288792 (Version 3)
Quarter: 2017Q1

REPORT INFORMATION
  Report Type: Report from Study
  Country: DE (occurrence: DE)
  Receive Date: 20170302
  Receipt Date: 20170321
  Transmission Date: 20170428
  Serious: Yes (Death, Hospitalization)
  Sender: FDA-Public Use
  Company Number: DE-ELI_LILLY_AND_COMPANY-DE201611000118

PATIENT
  Age: 43 Year
  Sex: Male
  Weight: 79.5 kg

DRUGS (2)
  1. CYRAMZA [Suspect]
     Active Substance: RAMUCIRUMAB
     Indication: METASTATIC GASTRIC CANCER
     Dosage: 8 MG/KG (656MG) ON DAY ONE AND 15 OF EACH CYCLE
     Route: 042
     Dates: start: 20161007
  2. PACLITAXEL. [Concomitant]
     Active Substance: PACLITAXEL
     Indication: GASTRIC CANCER
     Dosage: UNK
     Dates: start: 20161021, end: 20161021

REACTIONS (2)
  - Gastric perforation [Fatal]
  - Septic shock [Fatal]

NARRATIVE: CASE EVENT DATE: 20161029
